FAERS Safety Report 4821384-6 (Version None)
Quarter: 2005Q4

REPORT INFORMATION
  Report Type: 
  Country: None (occurrence: None)
  Receive Date: 20051104
  Receipt Date: 20051104
  Transmission Date: 20060501
  Serious: No
  Sender: FDA-Public Use
  Company Number: None

PATIENT
  Age: 27 Year
  Sex: Female

DRUGS (2)
  1. LO/OVRAL [Suspect]
     Dosage: TABLET
  2. OVRAL [Suspect]
     Dosage: TABLET

REACTIONS (4)
  - DRUG DISPENSING ERROR [None]
  - MEDICATION ERROR [None]
  - METRORRHAGIA [None]
  - WRONG DRUG ADMINISTERED [None]
